FAERS Safety Report 9150174 (Version 1)
Quarter: 2013Q1

REPORT INFORMATION
  Report Type: Spontaneous
  Country: US (occurrence: None)
  Receive Date: 20130228
  Receipt Date: 20130228
  Transmission Date: 20140127
  Serious: Yes (Hospitalization)
  Sender: FDA-Public Use
  Company Number: None

PATIENT
  Age: 65 Year
  Sex: Male
  Weight: 102.1 kg

DRUGS (1)
  1. ASPIRIN [Suspect]
     Dosage: 1-2 TAB EVERY DAY PO
     Route: 048
     Dates: start: 20130214, end: 20130215

REACTIONS (1)
  - Gastric haemorrhage [None]
